FAERS Safety Report 11050501 (Version 1)
Quarter: 2015Q2

REPORT INFORMATION
  Report Type: Spontaneous
  Country: FR (occurrence: FR)
  Receive Date: 20150421
  Receipt Date: 20150421
  Transmission Date: 20150821
  Serious: Yes (Hospitalization)
  Sender: FDA-Public Use
  Company Number: FR-BAYER-2015-129377

PATIENT
  Age: 53 Year
  Sex: Female

DRUGS (6)
  1. CIPROFLOXACIN BETAIN [Suspect]
     Active Substance: CIPROFLOXACIN
     Indication: PSEUDOMONAS INFECTION
  2. CIPROFLOXACIN BETAIN [Suspect]
     Active Substance: CIPROFLOXACIN
     Indication: STAPHYLOCOCCAL INFECTION
  3. ACICLOVIR [Concomitant]
     Active Substance: ACYCLOVIR
     Indication: STAPHYLOCOCCAL INFECTION
  4. ACICLOVIR [Concomitant]
     Active Substance: ACYCLOVIR
     Indication: PSEUDOMONAS INFECTION
     Dosage: 15 MG/KG, QD
     Route: 042
  5. VALACICLOVIR [Concomitant]
     Active Substance: VALACYCLOVIR HYDROCHLORIDE
     Dosage: DAILY DOSE 2 G
  6. PIPERACILLIN AND TAZOBACTAM [Concomitant]
     Active Substance: PIPERACILLIN SODIUM\TAZOBACTAM SODIUM

REACTIONS (6)
  - Skin candida [Recovered/Resolved]
  - Weight decreased [None]
  - Bedridden [None]
  - Candida infection [Recovered/Resolved]
  - Drug ineffective [None]
  - Major depression [None]
